FAERS Safety Report 13828406 (Version 1)
Quarter: 2017Q3

REPORT INFORMATION
  Report Type: Spontaneous
  Country: US (occurrence: US)
  Receive Date: 20170803
  Receipt Date: 20170803
  Transmission Date: 20171127
  Serious: No
  Sender: FDA-Public Use
  Company Number: US-PFIZER INC-2017332939

PATIENT
  Age: 7 Year
  Sex: Female

DRUGS (1)
  1. EUCRISA [Suspect]
     Active Substance: CRISABOROLE
     Indication: RASH PRURITIC
     Dosage: UNK UNK, AS NEEDED (APPLY TO FACE AND FOLDS TWICE DAILY AS NEEDED )
     Route: 061
     Dates: start: 201707

REACTIONS (2)
  - Dry skin [Unknown]
  - Product use in unapproved indication [Unknown]
